FAERS Safety Report 20821053 (Version 4)
Quarter: 2022Q2

REPORT INFORMATION
  Report Type: Spontaneous
  Country: IT (occurrence: IT)
  Receive Date: 20220512
  Receipt Date: 20220624
  Transmission Date: 20220721
  Serious: Yes (Death, Other)
  Sender: FDA-Public Use
  Company Number: IT-IGSA-BIG0018656

PATIENT
  Age: 45 Year
  Sex: Female

DRUGS (4)
  1. HUMAN IMMUNOGLOBULIN G [Suspect]
     Active Substance: HUMAN IMMUNOGLOBULIN G
     Indication: Acute motor axonal neuropathy
     Dosage: 0.4 GRAM PER KILOGRAM, SINGLE
     Route: 042
  2. HUMAN IMMUNOGLOBULIN G [Suspect]
     Active Substance: HUMAN IMMUNOGLOBULIN G
     Indication: Guillain-Barre syndrome
     Dosage: 0.4 GRAM PER KILOGRAM, QD
     Route: 042
  3. GADOLINIUM [Concomitant]
     Active Substance: GADOLINIUM
     Dosage: UNK
     Route: 065
  4. HUMAN PLASMA [Concomitant]
     Active Substance: HUMAN PLASMA
     Dosage: UNK

REACTIONS (7)
  - Posterior reversible encephalopathy syndrome [Fatal]
  - Reversible cerebral vasoconstriction syndrome [Fatal]
  - Vision blurred [Fatal]
  - Cerebral haemorrhage [Fatal]
  - Headache [Fatal]
  - Seizure [Fatal]
  - Cerebral ischaemia [Fatal]
